FAERS Safety Report 6504894-5 (Version None)
Quarter: 2009Q4

REPORT INFORMATION
  Report Type: 
  Country: None (occurrence: None)
  Receive Date: 20091218
  Receipt Date: 20091207
  Transmission Date: 20100525
  Serious: Yes (Other)
  Sender: FDA-Public Use
  Company Number: FR-ROCHE-674055

PATIENT
  Sex: Male

DRUGS (1)
  1. TAMIFLU [Suspect]
     Route: 048
     Dates: start: 20091116, end: 20091121

REACTIONS (3)
  - ARTHRITIS [None]
  - HAEMARTHROSIS [None]
  - JOINT EFFUSION [None]
